APPROVED DRUG PRODUCT: DOXYCYCLINE
Active Ingredient: DOXYCYCLINE
Strength: EQ 75MG BASE
Dosage Form/Route: TABLET;ORAL
Application: A065070 | Product #003 | TE Code: AB
Applicant: STRIDES PHARMA INTERNATIONAL AG
Approved: Dec 30, 2002 | RLD: No | RS: No | Type: RX